FAERS Safety Report 4386767-X (Version None)
Quarter: 2004Q2

REPORT INFORMATION
  Report Type: 
  Country: None (occurrence: None)
  Receive Date: 20040629
  Receipt Date: 20040504
  Transmission Date: 20050107
  Serious: Yes (Hospitalization)
  Sender: FDA-Public Use
  Company Number: FR-MERCK-0405FRA00007

PATIENT
  Age: 24 Year
  Sex: Female

DRUGS (1)
  1. VIOXX [Suspect]
     Indication: TORTICOLLIS
     Route: 048
     Dates: start: 20040501, end: 20040503

REACTIONS (1)
  - GRAND MAL CONVULSION [None]
